FAERS Safety Report 18331876 (Version 1)
Quarter: 2020Q3

REPORT INFORMATION
  Report Type: Spontaneous
  Country: DK (occurrence: DK)
  Receive Date: 20200930
  Receipt Date: 20200930
  Transmission Date: 20201103
  Serious: Yes (Hospitalization, Congenital Anomaly)
  Sender: FDA-Public Use
  Company Number: DK-JNJFOC-20200937384

PATIENT
  Age: 0 Day
  Sex: Male

DRUGS (1)
  1. SIMPONI [Suspect]
     Active Substance: GOLIMUMAB
     Indication: SPONDYLITIS
     Dosage: DOSAGE: UNKNOWNSTRENGTH: UNKNOWN?STARTE DATE UNKNOWN, BUT IN FIRST TRIMESTER
     Route: 064

REACTIONS (4)
  - Skin disorder [Unknown]
  - Foetal exposure during pregnancy [Recovered/Resolved]
  - Oedema neonatal [Unknown]
  - Growth disorder [Not Recovered/Not Resolved]

NARRATIVE: CASE EVENT DATE: 20200720
